FAERS Safety Report 16918043 (Version 4)
Quarter: 2020Q3

REPORT INFORMATION
  Report Type: Spontaneous
  Country: US (occurrence: US)
  Receive Date: 20191015
  Receipt Date: 20200910
  Transmission Date: 20201102
  Serious: Yes (Hospitalization, Other)
  Sender: FDA-Public Use
  Company Number: US-GILEAD-2019-0432938

PATIENT
  Age: 44 Year
  Sex: Female
  Weight: 53 kg

DRUGS (32)
  1. VENTOLIN HFA [Concomitant]
     Active Substance: ALBUTEROL SULFATE
     Dosage: UNK
     Dates: start: 20100810
  2. FLUCONAZOLE. [Concomitant]
     Active Substance: FLUCONAZOLE
  3. PRENATAL PLUS [Concomitant]
     Active Substance: .ALPHA.-TOCOPHEROL ACETATE, DL-\.BETA.-CAROTENE\ASCORBIC ACID\CALCIUM CARBONATE\CHOLECALCIFEROL\CUPRIC OXIDE\CYANOCOBALAMIN\FERROUS FUMARATE\FOLIC ACID\NIACINAMIDE\PYRIDOXINE HYDROCHLORIDE\RIBOFLAVIN\THIAMINE MONONITRATE\VITAMIN A ACETATE\ZINC OXIDE
     Dosage: UNK
     Dates: start: 20150604
  4. LIPITOR [Concomitant]
     Active Substance: ATORVASTATIN CALCIUM
     Dosage: UNK
     Dates: start: 20080109
  5. PROVENTIL HFA [Concomitant]
     Active Substance: ALBUTEROL SULFATE
  6. ERGOCALCIFEROL. [Concomitant]
     Active Substance: ERGOCALCIFEROL
  7. VITAMIN D3 [Concomitant]
     Active Substance: CHOLECALCIFEROL
     Dosage: UNK
     Dates: start: 20130820
  8. LAMIVUDINE AND ZIDOVUDINE [Concomitant]
     Active Substance: LAMIVUDINE\ZIDOVUDINE
     Dosage: UNK
     Dates: start: 20120130
  9. TIVICAY [Concomitant]
     Active Substance: DOLUTEGRAVIR SODIUM
     Dosage: UNK
     Dates: start: 20180101
  10. AZITHROMYCIN ANHYDROUS. [Concomitant]
     Active Substance: AZITHROMYCIN ANHYDROUS
     Dosage: UNK
     Dates: start: 20091228
  11. NYSTATIN. [Concomitant]
     Active Substance: NYSTATIN
     Dosage: UNK
     Dates: start: 20190221
  12. OXYCODONE/APAP [OXYCODONE HYDROCHLORIDE;PARACETAMOL] [Concomitant]
     Dosage: UNK
     Dates: start: 20080812
  13. CHANTIX [Concomitant]
     Active Substance: VARENICLINE TARTRATE
  14. LORATADINE. [Concomitant]
     Active Substance: LORATADINE
     Dosage: UNK
     Dates: start: 20110615
  15. LYRICA [Concomitant]
     Active Substance: PREGABALIN
     Dosage: UNK
     Dates: start: 20140403
  16. LEVAQUIN [Concomitant]
     Active Substance: LEVOFLOXACIN
     Dosage: UNK
     Dates: start: 20100108
  17. CIPROFLOXACIN. [Concomitant]
     Active Substance: CIPROFLOXACIN
     Dosage: UNK
     Dates: start: 20100810
  18. FLUARIX NOS [Concomitant]
     Active Substance: INFLUENZA VIRUS VACCINE
     Dosage: UNK
     Dates: start: 20091020
  19. PRAVASTATIN SODIUM. [Concomitant]
     Active Substance: PRAVASTATIN SODIUM
     Dosage: UNK
     Dates: start: 20140307
  20. PREZCOBIX [Concomitant]
     Active Substance: COBICISTAT\DARUNAVIR ETHANOLATE
     Dosage: UNK
     Dates: start: 20180110
  21. PROAIR HFA [Concomitant]
     Active Substance: ALBUTEROL SULFATE
     Dosage: UNK
     Dates: start: 20120305
  22. ASPIRIN ACTIV [Concomitant]
     Active Substance: ASPIRIN
     Dosage: UNK
     Dates: start: 20151023
  23. TUSSIONEX PENNKINETIC [Concomitant]
     Active Substance: CHLORPHENIRAMINE\HYDROCODONE
     Dosage: UNK
     Dates: start: 20100809
  24. ZOLPIDEM TARTRATE. [Concomitant]
     Active Substance: ZOLPIDEM TARTRATE
     Dosage: UNK
     Dates: start: 20100810
  25. PREDNISONE. [Concomitant]
     Active Substance: PREDNISONE
     Dosage: 10 MG
     Dates: start: 20160219
  26. VIREAD [Suspect]
     Active Substance: TENOFOVIR DISOPROXIL FUMARATE
     Indication: HIV INFECTION
     Dosage: 300 MG
     Route: 048
     Dates: start: 20080109, end: 20170411
  27. ATRIPLA [Suspect]
     Active Substance: EFAVIRENZ\EMTRICITABINE\TENOFOVIR DISOPROXIL FUMARATE
     Indication: HIV INFECTION
     Route: 048
  28. TRIAMCINOLONE ACETONIDE. [Concomitant]
     Active Substance: TRIAMCINOLONE ACETONIDE
     Dosage: UNK
     Dates: start: 20190415
  29. KALETRA [Concomitant]
     Active Substance: LOPINAVIR\RITONAVIR
     Dosage: UNK
     Dates: start: 20080109
  30. COMBIVIR [Concomitant]
     Active Substance: LAMIVUDINE\ZIDOVUDINE
     Dosage: UNK
     Dates: start: 20080109
  31. CLINDAMYCIN HYDROCHLORIDE. [Concomitant]
     Active Substance: CLINDAMYCIN HYDROCHLORIDE
     Dosage: UNK
     Dates: start: 20080812
  32. BENZONATATE. [Concomitant]
     Active Substance: BENZONATATE
     Dosage: UNK
     Dates: start: 20160219

REACTIONS (20)
  - Wrist fracture [Recovered/Resolved]
  - Hemiplegia [Unknown]
  - Muscular weakness [Unknown]
  - Gait inability [Unknown]
  - Spondylolisthesis [Unknown]
  - Arthritis [Not Recovered/Not Resolved]
  - Osteopenia [Unknown]
  - Pain in extremity [Not Recovered/Not Resolved]
  - Fatigue [Unknown]
  - Intervertebral disc degeneration [Unknown]
  - Back pain [Not Recovered/Not Resolved]
  - Upper limb fracture [Unknown]
  - Multiple fractures [Unknown]
  - Bone loss [Unknown]
  - Osteoporosis [Unknown]
  - Injury [Unknown]
  - Stress [Unknown]
  - Peroneal nerve palsy [Unknown]
  - Cervical radiculopathy [Unknown]
  - Pain [Unknown]

NARRATIVE: CASE EVENT DATE: 20180809
